FAERS Safety Report 8473038 (Version 9)
Quarter: 2013Q4

REPORT INFORMATION
  Report Type: Report from Study
  Country: US (occurrence: US)
  Receive Date: 20120322
  Receipt Date: 20131105
  Transmission Date: 20140711
  Serious: No
  Sender: FDA-Public Use
  Company Number: PHEH2012US006045

PATIENT
  Age: 58 Year
  Sex: Male
  Weight: 74.83 kg

DRUGS (15)
  1. GILENYA [Suspect]
     Indication: MULTIPLE SCLEROSIS
     Dosage: 0.5 MG, QD
     Route: 048
     Dates: start: 20110628, end: 20120221
  2. GILENYA [Suspect]
     Dosage: 0.5 MG, QD
     Route: 048
     Dates: start: 20120918
  3. FAMPRIDINE [Concomitant]
     Dosage: 10 MG, UNK
  4. NEURONTIN [Concomitant]
     Dosage: 300 MG, TID
     Route: 048
  5. NEURONTIN [Concomitant]
     Dosage: 100 MG, UNK
  6. CLARITIN [Concomitant]
     Dosage: 10 MG, QD
     Route: 048
  7. ATROVENT [Concomitant]
     Dosage: 2 DF, BID
  8. ALBUTEROL [Concomitant]
     Dosage: UNK UKN, PRN
  9. NASONEX [Concomitant]
     Dosage: 2 DF, QD
  10. TRIAMCINOLONE [Concomitant]
     Dosage: UNK UKN, UNK
  11. BACLOFEN [Concomitant]
     Dosage: 1 DF, TID
     Route: 048
     Dates: start: 20110330
  12. SEREVENT [Concomitant]
     Dosage: 50 UG, BID
  13. FLOMAX [Concomitant]
     Dosage: 1 DF, QD
     Route: 048
     Dates: start: 20110510
  14. AMPYRA [Concomitant]
     Dosage: 10 MG, UNK
  15. NASACORT [Concomitant]
     Dosage: UNK UKN, UNK

REACTIONS (1)
  - Heart rate decreased [Recovered/Resolved]
